FAERS Safety Report 24288465 (Version 1)
Quarter: 2024Q3

REPORT INFORMATION
  Report Type: Spontaneous
  Country: CA (occurrence: CA)
  Receive Date: 20240906
  Receipt Date: 20240906
  Transmission Date: 20241017
  Serious: Yes (Other)
  Sender: ASTELLAS
  Company Number: CA-ASTELLAS-2024-AER-002285

PATIENT
  Sex: Female

DRUGS (1)
  1. TACROLIMUS [Suspect]
     Active Substance: TACROLIMUS
     Indication: Immunosuppressant drug therapy
     Dosage: TABLET (EXTENDED RELEASE)
     Route: 065

REACTIONS (8)
  - Kidney transplant rejection [Unknown]
  - Renal infarct [Unknown]
  - Renal necrosis [Unknown]
  - Renal tubular necrosis [Unknown]
  - Thrombocytopenia [Unknown]
  - Thrombosis [Unknown]
  - Thrombotic microangiopathy [Unknown]
  - Urine output decreased [Unknown]
